FAERS Safety Report 24274659 (Version 1)
Quarter: 2024Q3

REPORT INFORMATION
  Report Type: Spontaneous
  Country: US (occurrence: US)
  Receive Date: 20240902
  Receipt Date: 20240902
  Transmission Date: 20241016
  Serious: No
  Sender: DR REDDYS
  Company Number: US-DRL-USA-SPO/USA/24/0012547

PATIENT
  Sex: Male

DRUGS (3)
  1. LATANOPROST [Suspect]
     Active Substance: LATANOPROST
     Indication: Glaucoma
     Dosage: NIGHTLY OU (BOTH EYES)
  2. TIMOLOL [Concomitant]
     Active Substance: TIMOLOL
     Indication: Glaucoma
  3. DORZOLAMIDE [Concomitant]
     Active Substance: DORZOLAMIDE

REACTIONS (2)
  - Treatment noncompliance [Unknown]
  - Product use issue [Unknown]
